FAERS Safety Report 18657072 (Version 1)
Quarter: 2020Q4

REPORT INFORMATION
  Report Type: Spontaneous
  Country: CN (occurrence: CN)
  Receive Date: 20201223
  Receipt Date: 20201223
  Transmission Date: 20210114
  Serious: Yes (Other)
  Sender: FDA-Public Use
  Company Number: CN-PFIZER INC-2020508716

PATIENT
  Age: 62 Year
  Sex: Female

DRUGS (1)
  1. LIPITOR [Suspect]
     Active Substance: ATORVASTATIN CALCIUM
     Indication: LIPIDS INCREASED
     Dosage: 20 G, 1X/DAY
     Route: 048
     Dates: start: 20200517, end: 20200520

REACTIONS (7)
  - Malaise [Unknown]
  - Nausea [Unknown]
  - Blood uric acid increased [Recovering/Resolving]
  - Hyperuricaemia [Recovering/Resolving]
  - Chest discomfort [Unknown]
  - Dizziness [Unknown]
  - Asthenia [Unknown]

NARRATIVE: CASE EVENT DATE: 20200518
